FAERS Safety Report 14443890 (Version 1)
Quarter: 2018Q1

REPORT INFORMATION
  Report Type: Spontaneous
  Country: US (occurrence: US)
  Receive Date: 20180125
  Receipt Date: 20180125
  Transmission Date: 20180509
  Serious: No
  Sender: FDA-Public Use
  Company Number: None

PATIENT
  Age: 61 Year
  Sex: Male

DRUGS (1)
  1. INLYTA [Suspect]
     Active Substance: AXITINIB

REACTIONS (6)
  - Arthralgia [None]
  - Fatigue [None]
  - Tongue discomfort [None]
  - Dysphonia [None]
  - Oral discomfort [None]
  - Dyspnoea [None]

NARRATIVE: CASE EVENT DATE: 20180125
